FAERS Safety Report 4790297-0 (Version None)
Quarter: 2005Q4

REPORT INFORMATION
  Report Type: 
  Country: None (occurrence: None)
  Receive Date: 20051005
  Receipt Date: 20051005
  Transmission Date: 20060501
  Serious: Yes (Life-Threatening, Hospitalization)
  Sender: FDA-Public Use
  Company Number: None

PATIENT
  Sex: Male

DRUGS (8)
  1. WARFARIN [Suspect]
     Indication: VASCULAR BYPASS GRAFT
     Dosage: 2.5 MG PO DAILY
     Route: 048
  2. METFORMIN [Concomitant]
  3. COLCHICINE [Concomitant]
  4. OMEPRAZOLE [Concomitant]
  5. FOLIC ACID [Concomitant]
  6. GLIPIZIDE [Concomitant]
  7. PRAVASTATIN [Concomitant]
  8. LISINOPRIL [Concomitant]

REACTIONS (4)
  - ABDOMINAL DISTENSION [None]
  - FAECES DISCOLOURED [None]
  - HAEMOGLOBIN DECREASED [None]
  - INTERNATIONAL NORMALISED RATIO INCREASED [None]
